FAERS Safety Report 13915643 (Version 2)
Quarter: 2019Q3

REPORT INFORMATION
  Report Type: Spontaneous
  Country: DE (occurrence: DE)
  Receive Date: 20170829
  Receipt Date: 20190910
  Transmission Date: 20191004
  Serious: Yes (Congenital Anomaly, Other)
  Sender: FDA-Public Use
  Company Number: DE-HETERO CORPORATE-HET2017DE00118

PATIENT
  Age: 10 Month
  Sex: Female
  Weight: 1.17 kg

DRUGS (3)
  1. CELESTAN                           /00008501/ [Concomitant]
     Active Substance: BETAMETHASONE
     Indication: MATERNAL THERAPY TO ENHANCE FOETAL LUNG MATURITY
     Dosage: UNK (3 TRIMISTER)
     Route: 064
     Dates: start: 20161123, end: 20161124
  2. LEVETIRACETAM. [Suspect]
     Active Substance: LEVETIRACETAM
     Indication: EPILEPSY
     Dosage: 2500 MG, QD
     Route: 064
     Dates: start: 20160503, end: 20161124
  3. FOLIO FORTE [Concomitant]
     Active Substance: FOLIC ACID\VITAMINS
     Indication: PROPHYLAXIS OF NEURAL TUBE DEFECT
     Dosage: 0.8 MG, QD (1 TRIMISTER )
     Route: 064
     Dates: start: 20160608, end: 20161124

REACTIONS (7)
  - Atrial septal defect [Not Recovered/Not Resolved]
  - Pulmonary valve stenosis congenital [Not Recovered/Not Resolved]
  - Foetal growth restriction [Unknown]
  - Cerebral haemorrhage neonatal [Recovering/Resolving]
  - Premature baby [Unknown]
  - Foetal exposure during pregnancy [Unknown]
  - Patent ductus arteriosus [Recovered/Resolved]

NARRATIVE: CASE EVENT DATE: 2016
